FAERS Safety Report 22746184 (Version 3)
Quarter: 2024Q2

REPORT INFORMATION
  Report Type: Spontaneous
  Country: BE (occurrence: BE)
  Receive Date: 20230725
  Receipt Date: 20240618
  Transmission Date: 20240716
  Serious: Yes (Hospitalization, Other)
  Sender: FDA-Public Use
  Company Number: BE-SAMSUNG BIOEPIS-SB-2023-19462

PATIENT
  Age: 73 Year
  Sex: Male

DRUGS (10)
  1. INFLIXIMAB [Suspect]
     Active Substance: INFLIXIMAB
     Indication: Immune-mediated enterocolitis
     Dosage: 2 DOSES
     Route: 042
     Dates: start: 2021
  2. INFLIXIMAB [Suspect]
     Active Substance: INFLIXIMAB
     Indication: Colitis ulcerative
  3. METHYLPREDNISOLONE [Suspect]
     Active Substance: METHYLPREDNISOLONE
     Indication: Immune-mediated enterocolitis
     Dosage: HIGH-DOSE
     Route: 042
     Dates: start: 2021
  4. METHYLPREDNISOLONE [Suspect]
     Active Substance: METHYLPREDNISOLONE
     Indication: Colitis ulcerative
     Dosage: DOSE INCREASED;
     Route: 042
     Dates: start: 2021
  5. METHYLPREDNISOLONE [Suspect]
     Active Substance: METHYLPREDNISOLONE
     Route: 048
     Dates: start: 2021
  6. METHYLPREDNISOLONE [Suspect]
     Active Substance: METHYLPREDNISOLONE
     Dosage: DEGRESSIVE DOSE
     Route: 042
     Dates: start: 2021
  7. MYCOPHENOLATE MOFETIL [Suspect]
     Active Substance: MYCOPHENOLATE MOFETIL
     Indication: Immune-mediated enterocolitis
     Route: 048
     Dates: start: 2021
  8. MYCOPHENOLATE MOFETIL [Suspect]
     Active Substance: MYCOPHENOLATE MOFETIL
     Indication: Colitis ulcerative
     Dosage: HIGH DOSE
     Route: 048
     Dates: start: 2021
  9. BECLOMETHASONE DIPROPIONATE [Suspect]
     Active Substance: BECLOMETHASONE DIPROPIONATE
     Indication: Immune-mediated enterocolitis
     Dosage: DEGRESSIVE DOSE
     Route: 061
     Dates: start: 2021
  10. BECLOMETHASONE DIPROPIONATE [Suspect]
     Active Substance: BECLOMETHASONE DIPROPIONATE
     Indication: Colitis ulcerative

REACTIONS (10)
  - Immune-mediated enterocolitis [Recovered/Resolved]
  - Staphylococcal bacteraemia [Recovering/Resolving]
  - Enterococcal bacteraemia [Recovering/Resolving]
  - Mononucleosis syndrome [Recovering/Resolving]
  - Cytomegalovirus infection reactivation [Recovering/Resolving]
  - Immunosuppression [Unknown]
  - Bacterial sepsis [Recovering/Resolving]
  - Enterococcal infection [Recovering/Resolving]
  - Drug ineffective for unapproved indication [Unknown]
  - Off label use [Unknown]

NARRATIVE: CASE EVENT DATE: 20210101
